FAERS Safety Report 12773562 (Version 19)
Quarter: 2018Q3

REPORT INFORMATION
  Report Type: Report from Study
  Country: CA (occurrence: CA)
  Receive Date: 20160923
  Receipt Date: 20180730
  Transmission Date: 20181010
  Serious: Yes (Other)
  Sender: FDA-Public Use
  Company Number: CA-BRISTOL-MYERS SQUIBB COMPANY-BMS-2016-031164

PATIENT
  Age: 52 Year
  Sex: Female

DRUGS (5)
  1. AXERT [Concomitant]
     Active Substance: ALMOTRIPTAN MALATE
     Indication: PRODUCT USED FOR UNKNOWN INDICATION
     Route: 065
  2. SYNTHROID [Concomitant]
     Active Substance: LEVOTHYROXINE SODIUM
     Indication: PRODUCT USED FOR UNKNOWN INDICATION
     Route: 065
  3. ABATACEPT [Suspect]
     Active Substance: ABATACEPT
     Indication: RHEUMATOID ARTHRITIS
     Dosage: 500 MG, Q4WK
     Route: 042
     Dates: start: 20140925
  4. PREDNISONE. [Concomitant]
     Active Substance: PREDNISONE
     Indication: PRODUCT USED FOR UNKNOWN INDICATION
     Dosage: 20 MG, QD
     Route: 065
  5. OXAZEPAM. [Concomitant]
     Active Substance: OXAZEPAM
     Indication: PRODUCT USED FOR UNKNOWN INDICATION
     Route: 065

REACTIONS (28)
  - Sinusitis [Unknown]
  - Nasopharyngitis [Recovered/Resolved]
  - Eczema [Unknown]
  - Joint dislocation [Unknown]
  - Cataract operation [Recovered/Resolved]
  - Abdominal pain upper [Not Recovered/Not Resolved]
  - Fatigue [Unknown]
  - Eye discharge [Recovered/Resolved]
  - Weight decreased [Unknown]
  - Gastrointestinal disorder [Unknown]
  - Lung infection [Unknown]
  - Tooth disorder [Unknown]
  - Spinal pain [Unknown]
  - Ovarian cyst [Not Recovered/Not Resolved]
  - Photosensitivity reaction [Not Recovered/Not Resolved]
  - Influenza like illness [Not Recovered/Not Resolved]
  - Vitreous detachment [Recovered/Resolved]
  - Nasal congestion [Unknown]
  - Oesophageal spasm [Unknown]
  - Productive cough [Unknown]
  - Abdominal pain [Unknown]
  - Oesophageal motility disorder [Unknown]
  - Skin mass [Unknown]
  - Eye swelling [Unknown]
  - Basilar artery aneurysm [Unknown]
  - Retinal detachment [Not Recovered/Not Resolved]
  - Dental restoration failure [Unknown]
  - Oral herpes [Unknown]

NARRATIVE: CASE EVENT DATE: 201603
